FAERS Safety Report 21694403 (Version 1)
Quarter: 2022Q4

REPORT INFORMATION
  Report Type: Spontaneous
  Country: CA (occurrence: CA)
  Receive Date: 20221207
  Receipt Date: 20221207
  Transmission Date: 20230112
  Serious: Yes (Other)
  Sender: FDA-Public Use
  Company Number: CA-PFIZER INC-202201349377

PATIENT
  Age: 30 Year
  Sex: Female
  Weight: 95.24 kg

DRUGS (12)
  1. SULFASALAZINE [Suspect]
     Active Substance: SULFASALAZINE
     Dosage: 1 G, 2X/DAY
     Dates: start: 201306, end: 20220825
  2. HYDROXYCHLOROQUINE SULFATE [Concomitant]
     Active Substance: HYDROXYCHLOROQUINE SULFATE
     Dosage: UNKNOWN
  3. PRED [PREDNISONE] [Concomitant]
     Indication: Pain
     Dosage: UNK
  4. PRED [PREDNISONE] [Concomitant]
     Indication: Inflammation
  5. ENBREL [Concomitant]
     Active Substance: ETANERCEPT
     Dosage: UNK
     Dates: start: 201311, end: 201610
  6. COSENTYX [Concomitant]
     Active Substance: SECUKINUMAB
     Dosage: UNK
     Dates: start: 201610, end: 201701
  7. CIMZIA [Concomitant]
     Active Substance: CERTOLIZUMAB PEGOL
     Dosage: UNK
     Dates: start: 201701, end: 201706
  8. HUMIRA [Concomitant]
     Active Substance: ADALIMUMAB
     Dosage: UNK
     Dates: start: 201706, end: 201904
  9. TALTZ [Concomitant]
     Active Substance: IXEKIZUMAB
     Dosage: UNK
     Dates: start: 201904, end: 202001
  10. SIMPONI [Concomitant]
     Active Substance: GOLIMUMAB
     Dosage: UNK
     Dates: start: 202001, end: 202008
  11. ERELZI [Concomitant]
     Active Substance: ETANERCEPT-SZZS
     Dosage: UNK
     Dates: start: 202101, end: 202111
  12. XELJANZ [Concomitant]
     Active Substance: TOFACITINIB CITRATE
     Dosage: UNK
     Dates: start: 202111, end: 202203

REACTIONS (5)
  - Deafness [Unknown]
  - C-reactive protein increased [Unknown]
  - Synovitis [Unknown]
  - Drug ineffective [Unknown]
  - Condition aggravated [Unknown]

NARRATIVE: CASE EVENT DATE: 20220720
